FAERS Safety Report 9159967 (Version 1)
Quarter: 2013Q1

REPORT INFORMATION
  Report Type: Spontaneous
  Country: MX (occurrence: MX)
  Receive Date: 20130313
  Receipt Date: 20130313
  Transmission Date: 20140127
  Serious: Yes (Death)
  Sender: FDA-Public Use
  Company Number: PHHY2013MX024260

PATIENT
  Age: 68 Year
  Sex: Female

DRUGS (7)
  1. DIOVAN [Suspect]
     Indication: HYPERTENSION
     Dosage: 1.5 DF, DAILY (80 MG)
     Route: 048
     Dates: start: 201001
  2. NORVASC [Concomitant]
     Dosage: 1 UKN, DAILY
     Dates: start: 200301, end: 201301
  3. EUTIROX [Concomitant]
     Dosage: 70 MG, UNK
     Dates: start: 199501, end: 201301
  4. PREVACID [Concomitant]
     Dosage: 1 UKN, DAILY
     Dates: start: 201001, end: 201301
  5. LYRICA [Concomitant]
     Dosage: 2 UKN, DAILY
     Dates: start: 201212, end: 201301
  6. KLONOPIN [Concomitant]
     Dosage: 10 DRP, DAILY
     Dates: start: 201001, end: 201201
  7. METAMUCIL [Concomitant]
     Dosage: (ONE SPOONFUL DISSOLVED IN WATER)
     Dates: start: 201101, end: 201301

REACTIONS (2)
  - Cerebrovascular accident [Fatal]
  - Wrong technique in drug usage process [Unknown]
